FAERS Safety Report 24366668 (Version 1)
Quarter: 2024Q3

REPORT INFORMATION
  Report Type: Spontaneous
  Country: ES (occurrence: ES)
  Receive Date: 20240926
  Receipt Date: 20240926
  Transmission Date: 20241017
  Serious: Yes (Hospitalization, Other)
  Sender: MERCK
  Company Number: ES-ROCHE-2968107

PATIENT
  Age: 53 Year
  Sex: Male
  Weight: 101.8 kg

DRUGS (33)
  1. PEMBROLIZUMAB [Suspect]
     Active Substance: PEMBROLIZUMAB
     Indication: Lung cancer metastatic
     Dosage: START DATE OF MOST RECENT DOSE OF STUDY DRUG PRIOR TO AE 22/SEP/2021 AND 05/NOV/2021.
     Route: 042
     Dates: start: 20210811
  2. PEMBROLIZUMAB [Suspect]
     Active Substance: PEMBROLIZUMAB
     Dosage: UNK
     Route: 042
  3. ATEZOLIZUMAB [Suspect]
     Active Substance: ATEZOLIZUMAB
     Indication: Lung cancer metastatic
     Dosage: UNK
     Route: 042
  4. ATEZOLIZUMAB [Suspect]
     Active Substance: ATEZOLIZUMAB
     Dosage: START DATE OF MOST RECENT DOSE OF STUDY DRUG PRIOR TO AE 22/SEP/2021 AND 05/NOV/2021.
     Route: 042
     Dates: start: 20210811
  5. TIRAGOLUMAB [Suspect]
     Active Substance: TIRAGOLUMAB
     Indication: Lung cancer metastatic
     Dosage: START DATE OF MOST RECENT DOSE OF STUDY DRUG PRIOR TO AE 22/SEP/2021 AND 05/NOV/2021
     Route: 042
     Dates: start: 20210811
  6. TIRAGOLUMAB [Suspect]
     Active Substance: TIRAGOLUMAB
     Dosage: UNK
     Route: 042
  7. ACETAMINOPHEN [Concomitant]
     Active Substance: ACETAMINOPHEN
     Indication: Pyrexia
     Dosage: 1 GRAM , PRN
     Route: 048
     Dates: start: 20211230, end: 20220105
  8. ENALAPRIL [Concomitant]
     Active Substance: ENALAPRIL
     Dosage: 10 MILLIGRAM, QD
     Route: 048
     Dates: start: 20220413, end: 20220505
  9. REMDESIVIR [Concomitant]
     Active Substance: REMDESIVIR
     Indication: Pneumonia
     Dosage: 200 MILLIGRAM, QD
     Route: 042
     Dates: start: 20211230, end: 20211230
  10. REMDESIVIR [Concomitant]
     Active Substance: REMDESIVIR
     Dosage: 100 MILLIGRAM, QD
     Route: 042
     Dates: start: 20211231, end: 20220103
  11. LEVOCABASTINE [Concomitant]
     Active Substance: LEVOCABASTINE
     Dosage: UNK
     Route: 047
     Dates: start: 20221201, end: 20230921
  12. FUROSEMIDE [Concomitant]
     Active Substance: FUROSEMIDE
     Dosage: 40 MILLIGRAM, QD
     Route: 048
     Dates: start: 20220728, end: 20220928
  13. FUROSEMIDE [Concomitant]
     Active Substance: FUROSEMIDE
     Dosage: 20 MILLIGRAM, QD
     Route: 048
     Dates: start: 20220707, end: 20220712
  14. CARBOPLATIN [Concomitant]
     Active Substance: CARBOPLATIN
     Indication: Lung cancer metastatic
     Dosage: START DATE OF MOST RECENT DOSE OF STUDY DRUG PRIOR TO AE 22/SEP/2021
     Route: 042
     Dates: start: 20210811
  15. CARBOPLATIN [Concomitant]
     Active Substance: CARBOPLATIN
     Dosage: START DATE OF MOST RECENT DOSE OF STUDY DRUG PRIOR TO SAE: 14/OCT/2021
     Route: 042
  16. ONDANSETRON [Concomitant]
     Active Substance: ONDANSETRON
     Indication: Nausea
     Dosage: 8 MILLIGRAM
     Route: 048
     Dates: start: 20210810
  17. DEXAMETHASONE [Concomitant]
     Active Substance: DEXAMETHASONE
     Indication: Oedema
     Dosage: 8 MILLIGRAM, Q3W
     Route: 048
     Dates: start: 20211104
  18. DEXAMETHASONE [Concomitant]
     Active Substance: DEXAMETHASONE
     Dosage: 4 MILLIGRAM, QD
     Route: 047
     Dates: start: 20220511, end: 20220517
  19. DEXAMETHASONE [Concomitant]
     Active Substance: DEXAMETHASONE
     Dosage: 2 MILLIGRAM, QD
     Route: 047
     Dates: start: 20220518, end: 20220601
  20. DEXAMETHASONE [Concomitant]
     Active Substance: DEXAMETHASONE
     Dosage: 2 MILLIGRAM
     Route: 047
     Dates: start: 20220509, end: 20220510
  21. DEXAMETHASONE [Concomitant]
     Active Substance: DEXAMETHASONE
     Dosage: 4 MILLIGRAM
     Route: 048
     Dates: start: 20210720
  22. DEXAMETHASONE [Concomitant]
     Active Substance: DEXAMETHASONE
     Dosage: 8 MILLIGRAM, Q3W
     Route: 048
     Dates: start: 20211106
  23. DEXAMETHASONE [Concomitant]
     Active Substance: DEXAMETHASONE
     Dosage: 2 MILLIGRAM, QD
     Route: 047
     Dates: start: 20220602, end: 20220613
  24. DEXAMETHASONE [Concomitant]
     Active Substance: DEXAMETHASONE
     Dosage: 12 MILLIGRAM, Q3W
     Route: 048
     Dates: start: 20210811, end: 20211015
  25. DEXAMETHASONE [Concomitant]
     Active Substance: DEXAMETHASONE
     Dosage: 12 MILLIGRAM, Q3W
     Route: 048
     Dates: start: 20210812, end: 20211016
  26. DEXAMETHASONE [Concomitant]
     Active Substance: DEXAMETHASONE
     Dosage: 8 MILLIGRAM, Q3W
     Route: 048
     Dates: start: 20211105
  27. METAMIZOLE [Concomitant]
     Active Substance: METAMIZOLE
     Indication: Headache
     Dosage: 1 CAPSULE
     Route: 048
     Dates: start: 20220124, end: 20220128
  28. PEMETREXED [Concomitant]
     Active Substance: PEMETREXED
     Indication: Lung cancer metastatic
     Dosage: DOSE LAST STUDY DRUG ADMIN PRIOR AE 1090 MG: 09/22/2021
     Route: 042
     Dates: start: 20210811
  29. PEMETREXED [Concomitant]
     Active Substance: PEMETREXED
     Dosage: START DATE OF MOST RECENT DOSE OF STUDY DRUG PRIOR TO SAE 17/DEC/2021
     Route: 042
  30. FAMOTIDINE [Concomitant]
     Active Substance: FAMOTIDINE
     Indication: Gastrooesophageal reflux disease
     Route: 048
     Dates: start: 20210720
  31. FOLIC ACID [Concomitant]
     Active Substance: FOLIC ACID
     Indication: Blood folate decreased
     Dosage: 400 MICROGRAM, QD
     Route: 048
     Dates: end: 20230921
  32. PRIMPERAN [Concomitant]
     Active Substance: METOCLOPRAMIDE HYDROCHLORIDE
     Indication: Vomiting
     Dosage: 1 MILLIGRAM
     Route: 048
     Dates: start: 20210810
  33. ACETAMINOPHEN [Concomitant]
     Active Substance: ACETAMINOPHEN
     Indication: Headache
     Dosage: 1 GRAM , PRN
     Route: 048
     Dates: start: 20220505

REACTIONS (2)
  - COVID-19 [Recovered/Resolved]
  - Hyperthyroidism [Not Recovered/Not Resolved]

NARRATIVE: CASE EVENT DATE: 20211013
